FAERS Safety Report 14850169 (Version 1)
Quarter: 2018Q2

REPORT INFORMATION
  Report Type: Report from Study
  Country: US (occurrence: US)
  Receive Date: 20180505
  Receipt Date: 20180505
  Transmission Date: 20180711
  Serious: Yes (Life-Threatening, Hospitalization, Other)
  Sender: FDA-Public Use
  Company Number: PHHY2018US001563

PATIENT
  Age: 51 Year
  Sex: Female

DRUGS (4)
  1. FEMARA [Suspect]
     Active Substance: LETROZOLE
     Indication: BREAST CANCER
     Dosage: 2.5 MG, QD
     Route: 065
     Dates: start: 20180313
  2. PALBOCICLIB [Suspect]
     Active Substance: PALBOCICLIB
     Indication: BREAST CANCER
     Dosage: 125 MG, CYCLIC (1 TO 21)
     Route: 065
     Dates: start: 20180313
  3. LISINOPRIL. [Concomitant]
     Active Substance: LISINOPRIL
     Indication: DYSPNOEA
     Dosage: 5 MG, UNK (CYCLE 1, DAY 22)
     Route: 065
     Dates: start: 20180403
  4. TRASTUZUMAB. [Suspect]
     Active Substance: TRASTUZUMAB
     Indication: BREAST CANCER
     Dosage: 2 MG/KG, CYCLIC (D 1, 8, 15, 22)
     Route: 065
     Dates: start: 20180313

REACTIONS (12)
  - Pulmonary embolism [Unknown]
  - Supraventricular tachycardia [Unknown]
  - Dyspnoea [Recovered/Resolved]
  - Palpitations [Recovered/Resolved]
  - Hypertension [Unknown]
  - Pleural effusion [Unknown]
  - Tachypnoea [Unknown]
  - Pain [Unknown]
  - Chest pain [Unknown]
  - Dizziness [Recovered/Resolved]
  - Troponin I increased [Unknown]
  - Acute pulmonary oedema [Unknown]

NARRATIVE: CASE EVENT DATE: 20180407
